FAERS Safety Report 8486684-X (Version None)
Quarter: 2012Q3

REPORT INFORMATION
  Report Type: 
  Country: None (occurrence: None)
  Receive Date: 20120704
  Receipt Date: 20120621
  Transmission Date: 20120928
  Serious: Yes (Other)
  Sender: FDA-Public Use
  Company Number: AU-AMGEN-AUSSP2012039933

PATIENT
  Age: 58 Year
  Sex: Female

DRUGS (6)
  1. NEXIUM [Concomitant]
     Dosage: UNK
  2. ENBREL [Suspect]
     Indication: RHEUMATOID ARTHRITIS
     Dosage: UNK
     Dates: start: 20120301
  3. FLUOXETINE HCL [Concomitant]
     Dosage: UNK
  4. ENDEP [Concomitant]
     Dosage: UNK
  5. MOBIC [Concomitant]
     Dosage: UNK
  6. PREDNISOLONE [Concomitant]
     Dosage: UNK

REACTIONS (3)
  - LOWER RESPIRATORY TRACT INFECTION [None]
  - ASTHMA [None]
  - BLOOD PRESSURE INCREASED [None]
